FAERS Safety Report 16512875 (Version 2)
Quarter: 2019Q3

REPORT INFORMATION
  Report Type: Spontaneous
  Country: US (occurrence: US)
  Receive Date: 20190702
  Receipt Date: 20190806
  Transmission Date: 20191004
  Serious: Yes (Hospitalization, Other)
  Sender: FDA-Public Use
  Company Number: US-PFIZER INC-2019269188

PATIENT
  Age: 27 Year
  Sex: Male
  Weight: 72.57 kg

DRUGS (2)
  1. METHIMAZOLE. [Suspect]
     Active Substance: METHIMAZOLE
     Indication: HYPERTHYROIDISM
     Dosage: 10 MG, 2X/DAY
     Dates: start: 20190606
  2. METHIMAZOLE. [Suspect]
     Active Substance: METHIMAZOLE
     Dosage: 5 MG, UNK

REACTIONS (6)
  - Depression [Not Recovered/Not Resolved]
  - Urticaria [Recovering/Resolving]
  - Constipation [Not Recovered/Not Resolved]
  - Rash [Recovering/Resolving]
  - Erythema [Recovering/Resolving]
  - Craniocerebral injury [Not Recovered/Not Resolved]

NARRATIVE: CASE EVENT DATE: 20190618
